FAERS Safety Report 7441720-4 (Version None)
Quarter: 2011Q2

REPORT INFORMATION
  Report Type: 
  Country: None (occurrence: None)
  Receive Date: 20110428
  Receipt Date: 20110417
  Transmission Date: 20111010
  Serious: Yes (Hospitalization)
  Sender: FDA-Public Use
  Company Number: US-NOVOPROD-326938

PATIENT
  Sex: Female
  Weight: 63.492 kg

DRUGS (2)
  1. LANTUS [Concomitant]
     Indication: TYPE 2 DIABETES MELLITUS
  2. NOVOLOG [Suspect]
     Indication: TYPE 2 DIABETES MELLITUS
     Dosage: UNK
     Dates: end: 20110415

REACTIONS (4)
  - DIARRHOEA [None]
  - HYPOTENSION [None]
  - HYPOGLYCAEMIA [None]
  - PAINFUL DEFAECATION [None]
